FAERS Safety Report 24776085 (Version 1)
Quarter: 2024Q4

REPORT INFORMATION
  Report Type: Spontaneous
  Country: US (occurrence: US)
  Receive Date: 20241226
  Receipt Date: 20241226
  Transmission Date: 20250114
  Serious: Yes (Other)
  Sender: BRISTOL-MYERS SQUIBB COMPANY
  Company Number: US-BRISTOL-MYERS SQUIBB COMPANY-2024-197353

PATIENT
  Age: 7 Decade
  Sex: Male

DRUGS (3)
  1. NIVOLUMAB [Suspect]
     Active Substance: NIVOLUMAB
     Indication: Hepatocellular carcinoma
     Dosage: A CYCLE
  2. LENVATINIB [Suspect]
     Active Substance: LENVATINIB
     Indication: Hepatocellular carcinoma
     Dosage: AT A LOWER DOSE OF 8 MG DAILY
  3. PD-1/PDL-1 (PROGRAMMED CELL DEATH PROTEIN 1/DEATH LIGAND 1) INHIBITORS [Concomitant]
     Indication: Hepatocellular carcinoma

REACTIONS (3)
  - Skin toxicity [Recovered/Resolved]
  - Immune-mediated renal disorder [Recovered/Resolved]
  - Off label use [Unknown]
